FAERS Safety Report 8361218-9 (Version None)
Quarter: 2012Q2

REPORT INFORMATION
  Report Type: 
  Country: None (occurrence: None)
  Receive Date: 20120515
  Receipt Date: 20110721
  Transmission Date: 20120825
  Serious: No
  Sender: FDA-Public Use
  Company Number: US-ALEXION-A201101108

PATIENT
  Sex: Male
  Weight: 302 kg

DRUGS (10)
  1. FOLIC ACID [Concomitant]
     Dosage: 1 MG
  2. B12-VITAMIN [Concomitant]
     Dosage: QOD
     Route: 060
  3. SOLIRIS [Suspect]
     Indication: PAROXYSMAL NOCTURNAL HAEMOGLOBINURIA
     Dosage: 900 MG Q 12 DAYS
     Route: 042
     Dates: start: 20101103
  4. POTASSIUM CHLORIDE [Concomitant]
     Dosage: 20 MEQ QOD
  5. DANAZOL [Concomitant]
     Dosage: 200 MG TID
  6. METOPROLOL TARTRATE [Concomitant]
     Dosage: 0.5 MG QD
  7. VITAMIN B6 [Concomitant]
     Dosage: 50 MG QD
  8. SOLIRIS [Suspect]
     Dosage: 900 MG, Q2W
     Route: 042
  9. FUROSEMIDE [Concomitant]
     Dosage: 40 MG QOD
  10. UROXATRAL [Concomitant]
     Dosage: 10 MG HS

REACTIONS (4)
  - FATIGUE [None]
  - BLOOD LACTATE DEHYDROGENASE INCREASED [None]
  - CHROMATURIA [None]
  - ASTHENIA [None]
